FAERS Safety Report 18794643 (Version 1)
Quarter: 2021Q1

REPORT INFORMATION
  Report Type: Spontaneous
  Country: US (occurrence: US)
  Receive Date: 20210127
  Receipt Date: 20210127
  Transmission Date: 20210419
  Serious: No
  Sender: FDA-Public Use
  Company Number: US-JNJFOC-20210132865

PATIENT
  Sex: Female

DRUGS (1)
  1. XARELTO [Suspect]
     Active Substance: RIVAROXABAN
     Indication: COAGULATION FACTOR MUTATION
     Route: 048

REACTIONS (4)
  - Metrorrhagia [Unknown]
  - Off label use [Unknown]
  - Endometriosis [Unknown]
  - Product use in unapproved indication [Unknown]
